FAERS Safety Report 4475293-5 (Version None)
Quarter: 2004Q4

REPORT INFORMATION
  Report Type: 
  Country: None (occurrence: None)
  Receive Date: 20041012
  Receipt Date: 20040928
  Transmission Date: 20050328
  Serious: Yes (Other)
  Sender: FDA-Public Use
  Company Number: 2004236064US

PATIENT
  Age: 88 Year
  Sex: Female
  Weight: 63.5 kg

DRUGS (7)
  1. DETROL LA [Suspect]
     Indication: HYPERTONIC BLADDER
     Dosage: QD, ORAL
     Route: 048
  2. EVISTA [Concomitant]
  3. TOPROL-XL [Concomitant]
  4. ZOLOFT [Concomitant]
  5. CALCIUM [Concomitant]
  6. VITAMIN C [Concomitant]
  7. VITAMIN E [Concomitant]

REACTIONS (1)
  - GLAUCOMA [None]
